FAERS Safety Report 6786142-4 (Version None)
Quarter: 2010Q2

REPORT INFORMATION
  Report Type: 
  Country: None (occurrence: None)
  Receive Date: 20100621
  Receipt Date: 20100621
  Transmission Date: 20101027
  Serious: Yes (Other)
  Sender: FDA-Public Use
  Company Number: None

PATIENT
  Sex: Female
  Weight: 29.4838 kg

DRUGS (1)
  1. OMNICEF [Suspect]
     Indication: EAR INFECTION
     Dates: start: 20080415, end: 20080419

REACTIONS (4)
  - EYELID OEDEMA [None]
  - LETHARGY [None]
  - OCULAR HYPERAEMIA [None]
  - SOMNOLENCE [None]
